FAERS Safety Report 15245619 (Version 3)
Quarter: 2018Q3

REPORT INFORMATION
  Report Type: Spontaneous
  Country: DE (occurrence: DE)
  Receive Date: 20180806
  Receipt Date: 20180829
  Transmission Date: 20181010
  Serious: Yes (Other)
  Sender: FDA-Public Use
  Company Number: PHHY2018DE059339

PATIENT
  Sex: Female
  Weight: 54 kg

DRUGS (57)
  1. MICROLAX [Concomitant]
     Indication: PRODUCT USED FOR UNKNOWN INDICATION
     Dosage: 5 ML, PRN (5 ML, AS NECESSARY)
     Route: 065
  2. FENTANYL. [Concomitant]
     Active Substance: FENTANYL
     Indication: OSTEOLYSIS
     Dosage: 25 UG, UNK (25 MUG, ALL THREE DAYS (PLASTER))
     Route: 065
  3. TAGAMET [Concomitant]
     Active Substance: CIMETIDINE
     Indication: PRODUCT USED FOR UNKNOWN INDICATION
     Dosage: 200 MG, UNK (200 MG, ONE TIME DOSE)
     Route: 065
     Dates: start: 20180201, end: 20180201
  4. CLEXANE [Concomitant]
     Active Substance: ENOXAPARIN SODIUM
     Indication: PROPHYLAXIS
     Dosage: 40 MG, QD
     Route: 065
     Dates: start: 201804
  5. ZITHROMAX [Concomitant]
     Active Substance: AZITHROMYCIN DIHYDRATE
     Indication: PRODUCT USED FOR UNKNOWN INDICATION
     Dosage: 500 MG, QD
     Route: 065
     Dates: start: 20180215
  6. ZITHROMAX [Concomitant]
     Active Substance: AZITHROMYCIN DIHYDRATE
     Dosage: 500 MG, QD
     Route: 065
     Dates: start: 20180218
  7. LORAZEPAM. [Concomitant]
     Active Substance: LORAZEPAM
     Indication: PROPHYLAXIS
     Dosage: 1 MG, QD
     Route: 065
     Dates: start: 20151015
  8. LENALIDOMIDE [Suspect]
     Active Substance: LENALIDOMIDE
     Dosage: 10 MG, UNK
     Route: 065
     Dates: start: 20180619
  9. CEFPODOXIME [Concomitant]
     Active Substance: CEFPODOXIME
     Indication: PRODUCT USED FOR UNKNOWN INDICATION
     Dosage: 200 MG, BID
     Route: 065
     Dates: start: 20180228, end: 20180310
  10. CODEINE [Concomitant]
     Active Substance: CODEINE
     Indication: PRODUCT USED FOR UNKNOWN INDICATION
     Dosage: 15 DROPS, QD
     Route: 065
     Dates: start: 20180220, end: 20180522
  11. RAMIPRIL. [Concomitant]
     Active Substance: RAMIPRIL
     Indication: HYPERTENSION
     Dosage: 2.5 MG, QD
     Route: 065
     Dates: start: 201804
  12. MCP [Concomitant]
     Active Substance: METOCLOPRAMIDE HYDROCHLORIDE
     Indication: PROPHYLAXIS
     Dosage: 10 MG, PRN (10 MG, AS NECESSARY)
     Route: 065
  13. ZOMETA [Concomitant]
     Active Substance: ZOLEDRONIC ACID
     Indication: OSTEOLYSIS
     Dosage: 4 MG, QMO
     Route: 065
     Dates: start: 20151007
  14. DULCOLAX NOS [Concomitant]
     Active Substance: BISACODYL OR DOCUSATE SODIUM
     Dosage: 1 DF, PRN (1 SUPPOSITORY, AS NECESSARY )
     Route: 065
     Dates: start: 20180522
  15. NITRANGIN [Concomitant]
     Indication: PRODUCT USED FOR UNKNOWN INDICATION
     Dosage: UNK (1 HUB, ONE TIME DOSE (SPRAY))
     Route: 065
     Dates: start: 20180201, end: 20180201
  16. XYLOCAINE [Concomitant]
     Active Substance: LIDOCAINE HYDROCHLORIDE
     Indication: PRODUCT USED FOR UNKNOWN INDICATION
     Dosage: 10 MG, PRN
     Route: 065
  17. PREDNISOLON [Concomitant]
     Active Substance: PREDNISOLONE
     Indication: PRODUCT USED FOR UNKNOWN INDICATION
     Dosage: 100 MG, UNK (100 MG, ONE TIME DOSE)
     Route: 065
     Dates: start: 20180201, end: 20180201
  18. IONOSTERIL [Concomitant]
     Indication: PROPHYLAXIS
     Dosage: 500 ML, BID (500 ML, ZUR THERAPY AND 500 ML TWICE PER DAY)
     Route: 065
     Dates: start: 20180123, end: 20180131
  19. ERYTHROZYTEN KONZENTRAT [Concomitant]
     Indication: PRODUCT USED FOR UNKNOWN INDICATION
     Dosage: 250 ML, UNK (250 ML, 2 BAGS DAILY; 500 ML ONE TIME, 2 BAGS DAILY)
     Route: 065
     Dates: start: 20180201
  20. CEFPO [Concomitant]
     Active Substance: CEFPODOXIME PROXETIL
     Indication: PROPHYLAXIS
     Dosage: 400 MG, QD (200 MG, BID)
     Route: 065
     Dates: start: 20180509, end: 20180514
  21. DEXAMETHASONE. [Suspect]
     Active Substance: DEXAMETHASONE
     Dosage: 8 MG, UNK
     Route: 065
     Dates: start: 20180201
  22. CARFILZOMIB [Suspect]
     Active Substance: CARFILZOMIB
     Indication: PLASMA CELL MYELOMA
     Dosage: 27 MG/M2, UNK
     Route: 042
  23. PROVIDEXTRA [Concomitant]
     Indication: PRODUCT USED FOR UNKNOWN INDICATION
     Dosage: 200 ML, PRN
     Route: 065
     Dates: start: 20180228, end: 20180522
  24. RAMIPRIL. [Concomitant]
     Active Substance: RAMIPRIL
     Dosage: 2.5 MG, QD
     Route: 065
     Dates: start: 20180516
  25. NOVALGIN (CAFFEINE\PARACETAMOL\PROPYPHENAZONE) [Concomitant]
     Active Substance: ACETAMINOPHEN\CAFFEINE\PROPYPHENAZONE
     Indication: PRODUCT USED FOR UNKNOWN INDICATION
     Dosage: 30 DRP, QID
     Route: 065
     Dates: start: 201804
  26. LORAZEPAM. [Concomitant]
     Active Substance: LORAZEPAM
     Dosage: 1 MG, QD
     Route: 065
     Dates: start: 20180522
  27. DEXAMETHASONE. [Suspect]
     Active Substance: DEXAMETHASONE
     Dosage: 40 MG, UNK
     Route: 065
     Dates: start: 20180130
  28. LENALIDOMIDE [Suspect]
     Active Substance: LENALIDOMIDE
     Dosage: 15 MG, UNK
     Route: 065
     Dates: start: 20180410
  29. LENALIDOMIDE [Suspect]
     Active Substance: LENALIDOMIDE
     Dosage: 10 MG, UNK
     Route: 065
     Dates: start: 20180502
  30. PANTOZOL [Concomitant]
     Active Substance: PANTOPRAZOLE SODIUM
     Indication: PROPHYLAXIS
     Dosage: 40 MG, QD (40 MG, AT THE DEXAMETHASONE DAY AND 40 MG DAILY)
     Route: 065
  31. PYRILAX [Concomitant]
     Indication: PROPHYLAXIS
     Dosage: 1 DF, PRN (1 SUPPOSITORY, AS NECESSARY)
     Route: 065
     Dates: start: 20151117, end: 20180227
  32. PROVIDEXTRA [Concomitant]
     Dosage: 200 ML, UNK (200 ML, AS NECESSARY (DRINK))
     Route: 065
  33. LACTULOSE. [Concomitant]
     Active Substance: LACTULOSE
     Indication: PRODUCT USED FOR UNKNOWN INDICATION
     Dosage: 30 ML, PRN (30 ML, AS NECESSARY)
     Route: 065
  34. MACROGOL [Concomitant]
     Active Substance: POLYETHYLENE GLYCOLS
     Indication: PROPHYLAXIS
     Dosage: 1 DF, QD (1 SACHET, QD)
     Route: 005
     Dates: start: 20151117
  35. LENALIDOMIDE [Suspect]
     Active Substance: LENALIDOMIDE
     Indication: PLASMA CELL MYELOMA
     Dosage: 15 MG, UNK
     Route: 065
     Dates: start: 20180123
  36. CARFILZOMIB [Suspect]
     Active Substance: CARFILZOMIB
     Dosage: 20 MG/M2, UNK
     Route: 042
     Dates: start: 20180123, end: 20180124
  37. LAXOBERAL [Concomitant]
     Active Substance: SODIUM PICOSULFATE
     Indication: PROPHYLAXIS
     Dosage: 15 DRP, PRN (15 DROPS, AS NECESSARY )
     Route: 065
  38. BAYOTENSIN [Concomitant]
     Active Substance: NITRENDIPINE
     Indication: PRODUCT USED FOR UNKNOWN INDICATION
     Dosage: 5 MG, QD
     Route: 005
     Dates: start: 20180201, end: 20180201
  39. MCP?RATIOPHARM [Concomitant]
     Active Substance: METOCLOPRAMIDE HYDROCHLORIDE
     Indication: PROPHYLAXIS
     Dosage: 10 MG, UNK (10 MG, AT THERAPY)
     Route: 065
  40. ABSTRAL [Concomitant]
     Active Substance: FENTANYL CITRATE
     Indication: PRODUCT USED FOR UNKNOWN INDICATION
     Dosage: 100 UG, PRN
     Route: 065
  41. LAKTULOSE [Concomitant]
     Dosage: 20 ML, PRN (20 ML, AS NECESSARY)
     Route: 065
     Dates: start: 20180227
  42. MOXIFLOXACIN. [Concomitant]
     Active Substance: MOXIFLOXACIN
     Indication: PRODUCT USED FOR UNKNOWN INDICATION
     Dosage: 400 MG, QD
     Route: 065
     Dates: start: 20180125
  43. DEXAMETHASONE. [Suspect]
     Active Substance: DEXAMETHASONE
     Indication: PLASMA CELL MYELOMA
     Dosage: 40 MG, UNK
     Route: 065
     Dates: start: 20180123
  44. DOLANTIN [Concomitant]
     Active Substance: MEPERIDINE
     Indication: PRODUCT USED FOR UNKNOWN INDICATION
     Dosage: 25 MG, QD
     Route: 065
     Dates: start: 20180201, end: 20180201
  45. NOVAMINSULFON [Concomitant]
     Active Substance: METAMIZOLE
     Indication: OSTEOLYSIS
     Dosage: 25 DRP, QID (25 DROPS, FOUR TIMES PER DAY AND 1 G ONE TIME DOSE)
     Route: 065
     Dates: start: 20180125, end: 20180227
  46. PROVIDEXTRA [Concomitant]
     Dosage: 200 ML, PRN
     Route: 065
  47. FENISTIL [Concomitant]
     Active Substance: DIMETHINDENE
     Indication: PRODUCT USED FOR UNKNOWN INDICATION
     Dosage: 1 MG, QD
     Route: 065
     Dates: start: 20180201, end: 20180201
  48. ACIC [Concomitant]
     Active Substance: ACYCLOVIR
     Indication: PROPHYLAXIS
     Dosage: 800 MG, QD (400 MG, BID )
     Route: 065
     Dates: end: 20180212
  49. DULCOLAX NOS [Concomitant]
     Active Substance: BISACODYL OR DOCUSATE SODIUM
     Indication: PROPHYLAXIS
     Dosage: 1 DF, PRN (1 SUPPOSITORY, AS NECESSARY )
     Route: 065
     Dates: start: 20180312
  50. MOVENTIG [Concomitant]
     Active Substance: NALOXEGOL OXALATE
     Indication: PROPHYLAXIS
     Dosage: 25 MG, QD
     Route: 065
     Dates: start: 20180328
  51. ACICLOVIR [Concomitant]
     Active Substance: ACYCLOVIR
     Indication: HERPES ZOSTER
     Dosage: 2400 MG, QD (800 MG, TID)
     Route: 065
     Dates: start: 20180523
  52. ERYTHROZYTEN KONZENTRAT [Concomitant]
     Dosage: 250 ML, UNK (250 ML, 2 BAGS DAILY; 500 ML ONE TIME, 2 BAGS DAILY)
     Route: 065
     Dates: end: 20180705
  53. ONDANSETRON [Concomitant]
     Active Substance: ONDANSETRON
     Indication: PROPHYLAXIS
     Dosage: 8 MG, PRN AS NEEDED 2X DAILY)
     Route: 065
  54. LAKTULOSE [Concomitant]
     Indication: PROPHYLAXIS
     Dosage: 20 ML, PRN (20 ML, AS NECESSARY)
     Route: 065
     Dates: start: 20151015
  55. HYDROMORPHONE [Concomitant]
     Active Substance: HYDROMORPHONE
     Indication: OSTEOLYSIS
     Dosage: 4 MG, QD (4 MG DAILY AND 1.3 MG AS NEEDED)
     Route: 065
  56. MOXIFLOXACIN. [Concomitant]
     Active Substance: MOXIFLOXACIN
     Dosage: 400 MG, QD
     Route: 065
     Dates: start: 20180131
  57. GLANDOMED [Concomitant]
     Indication: PRODUCT USED FOR UNKNOWN INDICATION
     Dosage: 10 ML, UNK
     Route: 065

REACTIONS (3)
  - Herpes zoster [Recovered/Resolved]
  - Thrombocytopenia [Not Recovered/Not Resolved]
  - Stomatitis [Not Recovered/Not Resolved]

NARRATIVE: CASE EVENT DATE: 20180509
